FAERS Safety Report 10373996 (Version 3)
Quarter: 2014Q3

REPORT INFORMATION
  Report Type: Spontaneous
  Country: US (occurrence: US)
  Receive Date: 20140810
  Receipt Date: 20140926
  Transmission Date: 20150326
  Serious: No
  Sender: FDA-Public Use
  Company Number: US-ASTRAZENECA-2014SE58171

PATIENT
  Age: 24728 Day
  Sex: Female
  Weight: 83.9 kg

DRUGS (2)
  1. NEXIUM 24HR [Suspect]
     Active Substance: ESOMEPRAZOLE MAGNESIUM
     Indication: GASTROOESOPHAGEAL REFLUX DISEASE
     Route: 048
     Dates: start: 20140731
  2. METFORMIN [Concomitant]
     Active Substance: METFORMIN HYDROCHLORIDE
     Indication: TYPE 2 DIABETES MELLITUS

REACTIONS (3)
  - Nausea [Unknown]
  - Intentional product misuse [Unknown]
  - Drug ineffective for unapproved indication [Unknown]

NARRATIVE: CASE EVENT DATE: 20140731
